FAERS Safety Report 25212425 (Version 1)
Quarter: 2025Q2

REPORT INFORMATION
  Report Type: Spontaneous
  Country: US (occurrence: US)
  Receive Date: 20250418
  Receipt Date: 20250418
  Transmission Date: 20250716
  Serious: No
  Sender: ALLEGIS PHARMACEUTICALS
  Company Number: US-SEBELA IRELAND LIMITED-2024SEB00070

PATIENT
  Sex: Female

DRUGS (1)
  1. NAFTIN [Suspect]
     Active Substance: NAFTIFINE HYDROCHLORIDE
     Indication: Tinea pedis
     Route: 061
     Dates: start: 20241004

REACTIONS (1)
  - Skin erosion [Not Recovered/Not Resolved]

NARRATIVE: CASE EVENT DATE: 20241001
